FAERS Safety Report 9156916 (Version 1)
Quarter: 2013Q1

REPORT INFORMATION
  Report Type: Spontaneous
  Country: US (occurrence: None)
  Receive Date: 20130308
  Receipt Date: 20130308
  Transmission Date: 20140127
  Serious: Yes (Other)
  Sender: FDA-Public Use
  Company Number: None

PATIENT
  Age: 62 Year
  Sex: Male
  Weight: 77.7 kg

DRUGS (2)
  1. ZOLEDRONIC ACID [Suspect]
     Indication: SURGERY
     Dosage: 4 MG OTHER FREQUENCY IV ROUTE
     Route: 042
     Dates: start: 20111007, end: 20120224
  2. ZOLEDRONIC ACID [Suspect]
     Indication: OSTEONECROSIS OF JAW
     Dosage: 4 MG OTHER FREQUENCY IV ROUTE
     Route: 042
     Dates: start: 20111007, end: 20120224

REACTIONS (1)
  - Osteonecrosis of jaw [None]
